FAERS Safety Report 4765924-4 (Version None)
Quarter: 2005Q3

REPORT INFORMATION
  Report Type: 
  Country: None (occurrence: None)
  Receive Date: 20050906
  Receipt Date: 20050818
  Transmission Date: 20060218
  Serious: Yes (Other)
  Sender: FDA-Public Use
  Company Number: GBS050818238

PATIENT
  Age: 24 Year
  Sex: Female

DRUGS (1)
  1. XIGRIS [Suspect]
     Dates: start: 20050816

REACTIONS (3)
  - ACTIVATED PARTIAL THROMBOPLASTIN TIME SHORTENED [None]
  - MELAENA [None]
  - THROMBOCYTOPENIA [None]
